FAERS Safety Report 6231564-3 (Version None)
Quarter: 2009Q2

REPORT INFORMATION
  Report Type: 
  Country: None (occurrence: None)
  Receive Date: 20090612
  Receipt Date: 20090603
  Transmission Date: 20091009
  Serious: Yes (Other)
  Sender: FDA-Public Use
  Company Number: 2009SP009190

PATIENT
  Age: 23 Year
  Sex: Female

DRUGS (3)
  1. DESLORATADINE [Suspect]
     Indication: SEASONAL ALLERGY
     Dosage: 2 DF; QD;
     Dates: start: 20090422, end: 20090429
  2. FLUOXETINE [Concomitant]
  3. OPIPRAMOL [Concomitant]

REACTIONS (1)
  - TREMOR [None]
